FAERS Safety Report 8504990-7 (Version None)
Quarter: 2012Q3

REPORT INFORMATION
  Report Type: 
  Country: None (occurrence: None)
  Receive Date: 20120712
  Receipt Date: 20120704
  Transmission Date: 20120928
  Serious: Yes (Other)
  Sender: FDA-Public Use
  Company Number: BR-ABBOTT-12P-020-0953205-00

PATIENT
  Sex: Female

DRUGS (4)
  1. PANTOPRAZOLE SODIUM [Concomitant]
     Indication: GASTRIC DISORDER
  2. CALCIUM [Concomitant]
     Indication: OSTEOARTHRITIS
     Route: 048
  3. PANTOPRAZOLE SODIUM [Concomitant]
     Indication: PROPHYLAXIS
     Dosage: FASTING
     Route: 048
  4. HUMIRA [Suspect]
     Indication: OSTEOARTHRITIS
     Route: 058

REACTIONS (3)
  - CATARACT [None]
  - PANCREATOLITHIASIS [None]
  - PAIN IN EXTREMITY [None]
